FAERS Safety Report 25504243 (Version 2)
Quarter: 2025Q3

REPORT INFORMATION
  Report Type: Report from Study
  Country: US (occurrence: US)
  Receive Date: 20250702
  Receipt Date: 20250723
  Transmission Date: 20251020
  Serious: Yes (Hospitalization)
  Sender: EISAI
  Company Number: US-Eisai-EC-2025-189692

PATIENT
  Age: 73 Year
  Sex: Female

DRUGS (3)
  1. LENVIMA [Suspect]
     Active Substance: LENVATINIB
     Indication: Endometrial cancer
     Dates: start: 20240519, end: 20250530
  2. LENVIMA [Suspect]
     Active Substance: LENVATINIB
  3. KEYTRUDA [Suspect]
     Active Substance: PEMBROLIZUMAB
     Indication: Endometrial cancer

REACTIONS (12)
  - Hypoaesthesia [Recovering/Resolving]
  - Fall [Unknown]
  - Weight decreased [Unknown]
  - Abdominal discomfort [Unknown]
  - Asthenia [Not Recovered/Not Resolved]
  - Gastric pH decreased [Not Recovered/Not Resolved]
  - Decreased appetite [Not Recovered/Not Resolved]
  - Nausea [Unknown]
  - Diarrhoea haemorrhagic [Unknown]
  - Somnolence [Not Recovered/Not Resolved]
  - Vomiting [Unknown]
  - Fatigue [Unknown]

NARRATIVE: CASE EVENT DATE: 20250101
